FAERS Safety Report 7358609-1 (Version None)
Quarter: 2011Q1

REPORT INFORMATION
  Report Type: 
  Country: None (occurrence: None)
  Receive Date: 20110317
  Receipt Date: 20110314
  Transmission Date: 20110831
  Serious: Yes (Hospitalization)
  Sender: FDA-Public Use
  Company Number: IT-ELI_LILLY_AND_COMPANY-IT201103004344

PATIENT
  Sex: Male

DRUGS (2)
  1. DEPAKENE [Concomitant]
     Dosage: 550 MG, UNK
     Route: 048
     Dates: start: 20090411, end: 20101117
  2. ZYPREXA [Suspect]
     Indication: ATTENTION DEFICIT/HYPERACTIVITY DISORDER
     Dosage: 5 MG, DAILY (1/D)
     Route: 048
     Dates: start: 20101101, end: 20101103

REACTIONS (4)
  - PSYCHOMOTOR HYPERACTIVITY [None]
  - OFF LABEL USE [None]
  - AGITATION [None]
  - AGGRESSION [None]
